FAERS Safety Report 9565666 (Version 1)
Quarter: 2013Q3

REPORT INFORMATION
  Report Type: Spontaneous
  Country: JP (occurrence: JP)
  Receive Date: 20130930
  Receipt Date: 20130930
  Transmission Date: 20140515
  Serious: Yes (Death, Other)
  Sender: FDA-Public Use
  Company Number: PHHY2013JP106609

PATIENT
  Age: 56 Year
  Sex: Male

DRUGS (7)
  1. CARBOPLATIN [Suspect]
     Indication: DIFFUSE LARGE B-CELL LYMPHOMA
     Dosage: 300 MG/M2, UNK
     Route: 042
  2. RANIMUSTINE [Suspect]
     Indication: DIFFUSE LARGE B-CELL LYMPHOMA
     Dosage: 200 MG/M2, UNK
     Route: 042
  3. ETOPOSIDE [Suspect]
     Indication: DIFFUSE LARGE B-CELL LYMPHOMA
     Dosage: 500 MG/M2, UNK
     Route: 042
  4. CYCLOPHOSPHAMIDE [Suspect]
     Indication: DIFFUSE LARGE B-CELL LYMPHOMA
     Dosage: 50 MG/KG, UNK
     Route: 042
  5. ANTIEMETICS [Concomitant]
  6. ANTIBIOTICS [Concomitant]
     Indication: PROPHYLAXIS
  7. URSODEOXYCHOLIC ACID [Concomitant]
     Indication: PROPHYLAXIS
     Dosage: 600 MG, UNK

REACTIONS (6)
  - Multi-organ failure [Fatal]
  - Venoocclusive liver disease [Unknown]
  - Hepatic function abnormal [Unknown]
  - Acute lung injury [Unknown]
  - Septic shock [Unknown]
  - Renal impairment [Unknown]
